FAERS Safety Report 19073798 (Version 2)
Quarter: 2021Q2

REPORT INFORMATION
  Report Type: Spontaneous
  Country: DE (occurrence: DE)
  Receive Date: 20210330
  Receipt Date: 20210415
  Transmission Date: 20210717
  Serious: Yes (Other)
  Sender: FDA-Public Use
  Company Number: NVSC2021DE069599

PATIENT
  Sex: Female

DRUGS (1)
  1. ESTRADIOL 2?1 A PHARMA [Suspect]
     Active Substance: ESTRADIOL
     Indication: PRODUCT USED FOR UNKNOWN INDICATION
     Dosage: UNK
     Route: 065

REACTIONS (4)
  - Product preparation error [Unknown]
  - Angina pectoris [Unknown]
  - Peripheral sensory neuropathy [Unknown]
  - Cardiac arrest [Unknown]
